FAERS Safety Report 4279156-X (Version None)
Quarter: 2004Q1

REPORT INFORMATION
  Report Type: 
  Country: None (occurrence: None)
  Receive Date: 20040127
  Receipt Date: 20040127
  Transmission Date: 20041129
  Serious: Yes (Hospitalization)
  Sender: FDA-Public Use
  Company Number: None

PATIENT
  Age: 67 Year
  Sex: Female
  Weight: 142 kg

DRUGS (7)
  1. ACTOS [Suspect]
     Indication: DIABETES MELLITUS
     Dosage: 45 MG QD
     Dates: start: 20031201
  2. PRANDIN [Concomitant]
  3. LASIX [Concomitant]
  4. PAXIL [Concomitant]
  5. DIGOXIN [Concomitant]
  6. ZESTRIL [Concomitant]
  7. TOPROL-XL [Concomitant]

REACTIONS (5)
  - ANAEMIA [None]
  - ANGINA UNSTABLE [None]
  - CARDIAC FAILURE [None]
  - CARDIAC FAILURE CONGESTIVE [None]
  - CONDITION AGGRAVATED [None]
